FAERS Safety Report 11865312 (Version 1)
Quarter: 2015Q4

REPORT INFORMATION
  Report Type: Spontaneous
  Country: CA (occurrence: CA)
  Receive Date: 20151223
  Receipt Date: 20151223
  Transmission Date: 20160305
  Serious: Yes (Other)
  Sender: FDA-Public Use
  Company Number: CA-CONCORDIA PHARMACEUTICALS INC.-CO-PL-CA-2015-427

PATIENT
  Sex: Female

DRUGS (8)
  1. LEFLUNOMIDE. [Suspect]
     Active Substance: LEFLUNOMIDE
  2. PLAQUENIL [Suspect]
     Active Substance: HYDROXYCHLOROQUINE SULFATE
     Indication: PRODUCT USED FOR UNKNOWN INDICATION
  3. RITUXIMAB [Concomitant]
     Active Substance: RITUXIMAB
  4. SULFASALAZINE. [Concomitant]
     Active Substance: SULFASALAZINE
  5. METHOTREXATE [Concomitant]
     Active Substance: METHOTREXATE
  6. TOFACITINIB CITRATE [Concomitant]
     Active Substance: TOFACITINIB CITRATE
     Dates: start: 20151127
  7. ETANERCEPT [Concomitant]
     Active Substance: ETANERCEPT
  8. ABATACEPT [Concomitant]
     Active Substance: ABATACEPT

REACTIONS (2)
  - Lung infection [Unknown]
  - Diarrhoea [Unknown]
